FAERS Safety Report 6063061-2 (Version None)
Quarter: 2009Q1

REPORT INFORMATION
  Report Type: 
  Country: None (occurrence: None)
  Receive Date: 20090203
  Receipt Date: 20090126
  Transmission Date: 20090719
  Serious: Yes (Other)
  Sender: FDA-Public Use
  Company Number: PHEH2009US01195

PATIENT
  Sex: Female

DRUGS (2)
  1. FEMARA [Suspect]
  2. OTHER ANTINEOPLASTIC AGENTS [Concomitant]
     Dosage: ^CANCER PILLS^

REACTIONS (3)
  - BALANCE DISORDER [None]
  - DECREASED APPETITE [None]
  - IRRITABLE BOWEL SYNDROME [None]
